FAERS Safety Report 21254549 (Version 4)
Quarter: 2025Q4

REPORT INFORMATION
  Report Type: Report from Study
  Country: EU (occurrence: EU)
  Receive Date: 20220825
  Receipt Date: 20251010
  Transmission Date: 20260117
  Serious: Yes (Death, Hospitalization)
  Sender: ABBVIE
  Company Number: EU-ABBVIE-22K-062-4514932-00

PATIENT
  Age: 82 Year
  Sex: Female

DRUGS (7)
  1. RINVOQ [Suspect]
     Active Substance: UPADACITINIB
     Indication: Rheumatoid arthritis
     Route: 048
     Dates: start: 202110, end: 202203
  2. METHOTREXATE SODIUM [Concomitant]
     Active Substance: METHOTREXATE SODIUM
     Indication: Product used for unknown indication
     Dosage: STOP DATE TEXT: BETWEEN28AUG2019 AND 02MAR2020
  3. METHOTREXATE SODIUM [Concomitant]
     Active Substance: METHOTREXATE SODIUM
     Indication: Product used for unknown indication
     Dosage: STOP DATE TEXT: BETWEEN28AUG2019 AND 02MAR2020
  4. METHOTREXATE SODIUM [Concomitant]
     Active Substance: METHOTREXATE SODIUM
     Indication: Product used for unknown indication
     Dosage: DURATION TEXT: BETWEEN 5AUG2020 AND 01JUL2021
  5. METHOTREXATE SODIUM [Concomitant]
     Active Substance: METHOTREXATE SODIUM
     Indication: Product used for unknown indication
     Dosage: START DATE TEXT: BETWEEN 5AUG2020 AND 01JUL2021
  6. METHOTREXATE SODIUM [Concomitant]
     Active Substance: METHOTREXATE SODIUM
     Indication: Product used for unknown indication
     Dosage: START DATE TEXT: BEFORE 27AUG2018
  7. ETANERCEPT [Concomitant]
     Active Substance: ETANERCEPT
     Indication: Product used for unknown indication
     Dates: start: 202207

REACTIONS (6)
  - Death [Fatal]
  - Rotator cuff syndrome [Recovered/Resolved]
  - Haemarthrosis [Recovered/Resolved]
  - Intervertebral discitis [Unknown]
  - Seroma [Recovered/Resolved]
  - Sepsis [Unknown]

NARRATIVE: CASE EVENT DATE: 20220705
